FAERS Safety Report 12067501 (Version 1)
Quarter: 2016Q1

REPORT INFORMATION
  Report Type: Spontaneous
  Country: US (occurrence: None)
  Receive Date: 20160210
  Receipt Date: 20160210
  Transmission Date: 20160526
  Serious: No
  Sender: FDA-Public Use
  Company Number: None

PATIENT
  Age: 52 Year
  Sex: Female

DRUGS (4)
  1. METFORMIN [Suspect]
     Active Substance: METFORMIN HYDROCHLORIDE
  2. TOUJEO [Concomitant]
     Active Substance: INSULIN GLARGINE
  3. LANTUS [Concomitant]
     Active Substance: INSULIN GLARGINE
  4. LIPITOR [Suspect]
     Active Substance: ATORVASTATIN CALCIUM

REACTIONS (9)
  - Constipation [None]
  - Gastric bypass [None]
  - Food craving [None]
  - Glycosylated haemoglobin increased [None]
  - Fatigue [None]
  - Decreased activity [None]
  - Anger [None]
  - Post procedural complication [None]
  - Fluid intake reduced [None]
